FAERS Safety Report 5697782-8 (Version None)
Quarter: 2008Q2

REPORT INFORMATION
  Report Type: 
  Country: None (occurrence: None)
  Receive Date: 20080404
  Receipt Date: 20080404
  Transmission Date: 20081010
  Serious: Yes (Hospitalization)
  Sender: FDA-Public Use
  Company Number: None

PATIENT
  Age: 11 Year
  Sex: Female
  Weight: 58.9 kg

DRUGS (5)
  1. KEPPRA [Suspect]
     Indication: COMPLEX PARTIAL SEIZURES
     Dosage: 1000MG QAM PO
     Route: 048
     Dates: start: 20080219, end: 20080304
  2. KEPPRA [Suspect]
     Indication: MIGRAINE
     Dosage: 1000MG QAM PO
     Route: 048
     Dates: start: 20080219, end: 20080304
  3. KEPPRA [Suspect]
     Dosage: 500MG QHS PO
     Route: 048
     Dates: start: 20080219, end: 20080304
  4. CLARITIN [Concomitant]
  5. ALBUTEROL [Concomitant]

REACTIONS (1)
  - SUICIDAL IDEATION [None]
